FAERS Safety Report 6691769-4 (Version None)
Quarter: 2010Q2

REPORT INFORMATION
  Report Type: 
  Country: None (occurrence: None)
  Receive Date: 20100422
  Receipt Date: 20100204
  Transmission Date: 20101027
  Serious: No
  Sender: FDA-Public Use
  Company Number: US-ASTRAZENECA-2010SE05096

PATIENT
  Age: 18942 Day
  Sex: Female

DRUGS (2)
  1. METOPROLOL SUCCINATE [Suspect]
     Indication: PALPITATIONS
     Route: 048
     Dates: start: 20060101, end: 20090101
  2. METOPROLOL SUCCINATE [Suspect]
     Route: 048
     Dates: start: 20090101

REACTIONS (3)
  - CARDIAC FLUTTER [None]
  - PALPITATIONS [None]
  - PRE-EXISTING CONDITION IMPROVED [None]
